FAERS Safety Report 8783926 (Version 2)
Quarter: 2012Q4

REPORT INFORMATION
  Report Type: 
  Country: US (occurrence: US)
  Receive Date: 20120913
  Receipt Date: 20121121
  Transmission Date: 20130627
  Serious: No
  Sender: FDA-Public Use
  Company Number: US-VERTEX PHARMACEUTICAL INC.-AE-2012-009310

PATIENT
  Age: 62 Year
  Sex: Male

DRUGS (5)
  1. VX-950 (TELAPREVIR) [Suspect]
     Indication: HEPATITIS C
     Dosage: UNK
     Route: 048
     Dates: start: 2012
  2. PEGASYS [Concomitant]
     Indication: HEPATITIS C
     Dosage: 180 ?g, UNK
     Route: 058
     Dates: start: 2012
  3. RIBAPAK [Concomitant]
     Indication: HEPATITIS C
     Dosage: 600 am, 400 pm
     Route: 048
     Dates: start: 2012
  4. AMLODIPINE BESYLATE [Concomitant]
     Route: 048
  5. PAROXETINE HCL [Concomitant]
     Route: 048

REACTIONS (2)
  - Alopecia [Unknown]
  - Anorectal discomfort [Unknown]
